FAERS Safety Report 23220804 (Version 1)
Quarter: 2023Q4

REPORT INFORMATION
  Report Type: Spontaneous
  Country: FR (occurrence: FR)
  Receive Date: 20231123
  Receipt Date: 20231123
  Transmission Date: 20240110
  Serious: Yes (Hospitalization, Other)
  Sender: FDA-Public Use
  Company Number: None

PATIENT
  Age: 49 Year
  Sex: Male
  Weight: 87 kg

DRUGS (9)
  1. CLOXACILLIN [Suspect]
     Active Substance: CLOXACILLIN
     Indication: Intervertebral discitis
     Dosage: 12 G, QD (12G/24H)
     Route: 042
     Dates: start: 20220115, end: 20220118
  2. CLOXACILLIN [Suspect]
     Active Substance: CLOXACILLIN
     Dosage: 2 G, QD (2G/24H; QD)
     Route: 042
     Dates: start: 20220114, end: 20220114
  3. VANCOMYCIN [Suspect]
     Active Substance: VANCOMYCIN
     Dosage: 3 G, TID (1G 3X/D EVERY 8 HOURS)
     Route: 042
     Dates: start: 20220121, end: 20220121
  4. VANCOMYCIN [Suspect]
     Active Substance: VANCOMYCIN
     Dosage: 3 G, TID (1G 3X/D EVERY 8 HOURS)
     Route: 042
     Dates: start: 20220123, end: 20220126
  5. LOVENOX [Suspect]
     Active Substance: ENOXAPARIN SODIUM
     Indication: Thrombosis prophylaxis
     Dosage: 40 MG, QD (4000 IU/DAY)
     Route: 058
     Dates: start: 20220115, end: 20220119
  6. LOVENOX [Suspect]
     Active Substance: ENOXAPARIN SODIUM
     Indication: Nephropathy
     Dosage: 40 MG, QD (4000 IU/DAY)
     Route: 058
     Dates: start: 20220128, end: 20220202
  7. LOVENOX [Suspect]
     Active Substance: ENOXAPARIN SODIUM
     Dosage: 40 MG, QD (4000 IU/DAY)
     Route: 058
     Dates: start: 20220123, end: 20220126
  8. CEFEPIME [Suspect]
     Active Substance: CEFEPIME HYDROCHLORIDE
     Indication: Intervertebral discitis
     Dosage: 2 G, TID (2G/8H, 6G/24H)
     Route: 042
     Dates: start: 20220124, end: 20220128
  9. CEFEPIME [Suspect]
     Active Substance: CEFEPIME HYDROCHLORIDE
     Dosage: 2 G, TID (2G/8H, 6G/24H)
     Route: 042
     Dates: start: 20220120, end: 20220123

REACTIONS (1)
  - Drug reaction with eosinophilia and systemic symptoms [Recovered/Resolved]
